FAERS Safety Report 8347091-3 (Version None)
Quarter: 2012Q2

REPORT INFORMATION
  Report Type: 
  Country: None (occurrence: None)
  Receive Date: 20120509
  Receipt Date: 20120430
  Transmission Date: 20120825
  Serious: Yes (Hospitalization)
  Sender: FDA-Public Use
  Company Number: US-ASTRAZENECA-2012SE17309

PATIENT
  Age: 79 Year
  Sex: Female
  Weight: 84.4 kg

DRUGS (2)
  1. NEXIUM [Suspect]
     Route: 048
  2. CELEBREX [Concomitant]

REACTIONS (6)
  - DRUG DOSE OMISSION [None]
  - CATARACT [None]
  - GAIT DISTURBANCE [None]
  - ADVERSE EVENT [None]
  - HEARING IMPAIRED [None]
  - CONFUSIONAL STATE [None]
